FAERS Safety Report 20577365 (Version 2)
Quarter: 2022Q1

REPORT INFORMATION
  Report Type: Spontaneous
  Country: US (occurrence: US)
  Receive Date: 20220310
  Receipt Date: 20220324
  Transmission Date: 20220423
  Serious: Yes (Life-Threatening, Hospitalization)
  Sender: FDA-Public Use
  Company Number: US-TEVA-2022-US-2014115

PATIENT
  Age: 25 Year
  Sex: Male

DRUGS (1)
  1. PROPOFOL [Suspect]
     Active Substance: PROPOFOL
     Indication: Sedative therapy
     Route: 050

REACTIONS (7)
  - Hyperlipidaemia [Unknown]
  - Hypertriglyceridaemia [Recovering/Resolving]
  - Hypoxia [Recovering/Resolving]
  - Respiratory disorder [Recovering/Resolving]
  - Acute respiratory distress syndrome [Unknown]
  - Fat embolism [Unknown]
  - Hypoxia [Unknown]
